FAERS Safety Report 23702927 (Version 1)
Quarter: 2024Q2

REPORT INFORMATION
  Report Type: Report from Study
  Country: CA (occurrence: CA)
  Receive Date: 20240403
  Receipt Date: 20240403
  Transmission Date: 20240715
  Serious: Yes (Other)
  Sender: FDA-Public Use
  Company Number: CA-GSK-CA2023168689

PATIENT

DRUGS (5)
  1. BELIMUMAB [Suspect]
     Active Substance: BELIMUMAB
     Indication: Lupus nephritis
     Dosage: 200 MG, WE
     Route: 058
     Dates: start: 20221028
  2. BELIMUMAB [Suspect]
     Active Substance: BELIMUMAB
     Indication: Lupus nephritis
     Dosage: 200 MG, WE
     Dates: start: 20221028
  3. PREDNISONE [Concomitant]
     Active Substance: PREDNISONE
     Indication: Product used for unknown indication
     Dosage: 6 MG, QD (DIE)
  4. MYFORTIC [Concomitant]
     Active Substance: MYCOPHENOLATE SODIUM
     Indication: Product used for unknown indication
     Dosage: UNK
  5. COUMADIN [Concomitant]
     Active Substance: WARFARIN SODIUM
     Indication: Product used for unknown indication
     Dosage: UNK

REACTIONS (11)
  - Electrocauterisation [Recovered/Resolved]
  - Skin lesion removal [Recovered/Resolved]
  - Papilloma viral infection [Recovering/Resolving]
  - Nail injury [Unknown]
  - Erythema [Unknown]
  - Onychalgia [Recovered/Resolved]
  - Secretion discharge [Recovered/Resolved]
  - Purulent discharge [Recovered/Resolved]
  - Oedema [Unknown]
  - Pain [Unknown]
  - Human papilloma virus test positive [Unknown]

NARRATIVE: CASE EVENT DATE: 20231126
